FAERS Safety Report 4444002-8 (Version None)
Quarter: 2004Q3

REPORT INFORMATION
  Report Type: 
  Country: None (occurrence: None)
  Receive Date: 20040729
  Receipt Date: 20020628
  Transmission Date: 20050211
  Serious: Yes (Death)
  Sender: FDA-Public Use
  Company Number: USA-2002-0001527

PATIENT
  Age: 40 Year
  Sex: Male
  Weight: 65.8 kg

DRUGS (10)
  1. MORPHINE SULFATE [Suspect]
  2. OXYCODONE HCL [Suspect]
  3. COCAINE (COCAINE) [Suspect]
  4. METHADONE HCL [Suspect]
  5. ALCOHOL (ETHANOL) [Suspect]
  6. PROPOXYPHENE HCL [Suspect]
  7. AMITRIPTYLINE HCL [Suspect]
  8. CARISOPRODOL [Suspect]
  9. DEXTROMETHORPHAN (DEXTROMETHORPHAN) [Suspect]
  10. DIAZEPAM [Suspect]

REACTIONS (2)
  - ACCIDENTAL OVERDOSE [None]
  - MULTIPLE DRUG OVERDOSE [None]
